FAERS Safety Report 6406896-6 (Version None)
Quarter: 2009Q4

REPORT INFORMATION
  Report Type: 
  Country: None (occurrence: None)
  Receive Date: 20091020
  Receipt Date: 20091012
  Transmission Date: 20100525
  Serious: No
  Sender: FDA-Public Use
  Company Number: US-B.I. PHARMACEUTICALS,INC./RIDGEFIELD-2009-BP-11876BP

PATIENT
  Age: 82 Year
  Sex: Male

DRUGS (3)
  1. FLOMAX [Suspect]
     Indication: PROSTATOMEGALY
     Dosage: 0.8 MG
     Route: 048
     Dates: start: 20090401
  2. AMARYL [Concomitant]
     Indication: DIABETES MELLITUS
  3. METFORMIN [Concomitant]
     Indication: DIABETES MELLITUS

REACTIONS (1)
  - NOCTURIA [None]
